FAERS Safety Report 8186915-X (Version None)
Quarter: 2012Q1

REPORT INFORMATION
  Report Type: 
  Country: None (occurrence: None)
  Receive Date: 20120306
  Receipt Date: 20120301
  Transmission Date: 20120608
  Serious: Yes (Life-Threatening, Hospitalization, Other)
  Sender: FDA-Public Use
  Company Number: SE-PFIZER INC-2012036899

PATIENT
  Age: 55 Year
  Sex: Female

DRUGS (4)
  1. SIMVASTATIN [Concomitant]
     Dosage: 20 MG, 1X/DAY
  2. RAMIPRIL [Suspect]
     Dosage: 10 MG, 1X/DAY
  3. ATENOLOL [Concomitant]
     Dosage: 50 MG, 1X/DAY
  4. METFORMIN HCL [Suspect]
     Dosage: 1000 MG, 3X/DAY

REACTIONS (3)
  - RENAL FAILURE ACUTE [None]
  - COMA [None]
  - LACTIC ACIDOSIS [None]
